FAERS Safety Report 7998695-9 (Version None)
Quarter: 2011Q4

REPORT INFORMATION
  Report Type: 
  Country: None (occurrence: None)
  Receive Date: 20111221
  Receipt Date: 20111216
  Transmission Date: 20120403
  Serious: Yes (Other)
  Sender: FDA-Public Use
  Company Number: US-US-EMD SERONO, INC.-7059432

PATIENT
  Sex: Male

DRUGS (2)
  1. REBIF [Suspect]
     Indication: PRODUCT USED FOR UNKNOWN INDICATION
     Route: 058
     Dates: start: 20031114
  2. BLOOD PRESSURE MEDICATIONS [Suspect]
     Indication: BLOOD PRESSURE

REACTIONS (2)
  - RENAL IMPAIRMENT [None]
  - HERNIA REPAIR [None]
